FAERS Safety Report 25682185 (Version 2)
Quarter: 2025Q4

REPORT INFORMATION
  Report Type: Report from Study
  Country: CN (occurrence: CN)
  Receive Date: 20250814
  Receipt Date: 20251105
  Transmission Date: 20260118
  Serious: Yes (Other)
  Sender: ELI LILLY AND COMPANY
  Company Number: CN-ELI_LILLY_AND_COMPANY-CN202508006407

PATIENT
  Age: 42 Year
  Sex: Female

DRUGS (1)
  1. ABEMACICLIB [Suspect]
     Active Substance: ABEMACICLIB
     Indication: Breast cancer
     Dosage: 150 MG, BID
     Route: 048
     Dates: start: 20250623

REACTIONS (6)
  - Renal injury [Unknown]
  - White blood cell count decreased [Unknown]
  - Poor quality sleep [Unknown]
  - Weight fluctuation [Unknown]
  - Anaemia [Unknown]
  - Diarrhoea [Unknown]
